FAERS Safety Report 5186442-8 (Version None)
Quarter: 2006Q4

REPORT INFORMATION
  Report Type: 
  Country: None (occurrence: None)
  Receive Date: 20061220
  Receipt Date: 20061213
  Transmission Date: 20070319
  Serious: Yes (Other)
  Sender: FDA-Public Use
  Company Number: US-AMGEN-US203498

PATIENT
  Sex: Male

DRUGS (5)
  1. PANITUMUMAB [Suspect]
     Indication: COLORECTAL CANCER
     Route: 042
     Dates: start: 20060830, end: 20061008
  2. AVASTIN [Concomitant]
     Route: 042
  3. IRINOTECAN HCL [Concomitant]
     Route: 042
  4. FOLINIC ACID [Concomitant]
     Route: 042
  5. FLUOROURACIL [Concomitant]
     Route: 042

REACTIONS (1)
  - PULMONARY EMBOLISM [None]
